FAERS Safety Report 8519761-5 (Version None)
Quarter: 2012Q3

REPORT INFORMATION
  Report Type: 
  Country: None (occurrence: None)
  Receive Date: 20120719
  Receipt Date: 20120711
  Transmission Date: 20120928
  Serious: No
  Sender: FDA-Public Use
  Company Number: US-BIOGENIDEC-2012BI015372

PATIENT
  Sex: Female

DRUGS (2)
  1. TYSABRI [Suspect]
     Indication: MULTIPLE SCLEROSIS
     Route: 042
     Dates: start: 20120403
  2. AVONEX [Concomitant]
     Indication: MULTIPLE SCLEROSIS
     Route: 030
     Dates: start: 20020115

REACTIONS (5)
  - FATIGUE [None]
  - PRURITUS GENERALISED [None]
  - RASH PRURITIC [None]
  - OEDEMA PERIPHERAL [None]
  - HYPERSENSITIVITY [None]
